FAERS Safety Report 23945780 (Version 1)
Quarter: 2024Q2

REPORT INFORMATION
  Report Type: Spontaneous
  Country: TR (occurrence: TR)
  Receive Date: 20240606
  Receipt Date: 20240606
  Transmission Date: 20240717
  Serious: Yes (Other)
  Sender: FDA-Public Use
  Company Number: TR-002147023-NVSC2024TR115018

PATIENT
  Age: 20 Year
  Sex: Male

DRUGS (2)
  1. TRILEPTAL [Suspect]
     Active Substance: OXCARBAZEPINE
     Indication: Cerebral palsy
     Dosage: 450 MG, BID (MORNING AND EVENING)
     Route: 065
  2. TRILEPTAL [Suspect]
     Active Substance: OXCARBAZEPINE
     Dosage: UNK (STRENGTH: 600 MG) (FOR 11 YEARS)
     Route: 065

REACTIONS (4)
  - Seizure [Unknown]
  - Blepharospasm [Unknown]
  - Product availability issue [Unknown]
  - Off label use [Unknown]
